FAERS Safety Report 16487815 (Version 1)
Quarter: 2019Q2

REPORT INFORMATION
  Report Type: Spontaneous
  Country: US (occurrence: US)
  Receive Date: 20190627
  Receipt Date: 20190627
  Transmission Date: 20190711
  Serious: No
  Sender: FDA-Public Use
  Company Number: US-009507513-1812USA000275

PATIENT
  Sex: Female

DRUGS (5)
  1. INTRON A [Suspect]
     Active Substance: INTERFERON ALFA-2B
     Indication: BRAIN NEOPLASM MALIGNANT
     Dosage: 8.5 MILLION INTERNATIONAL UNIT, TIW (STRENGTH: 25 MU MDV)
     Route: 058
  2. TEMOZOLOMIDE. [Concomitant]
     Active Substance: TEMOZOLOMIDE
  3. INTRON A [Suspect]
     Active Substance: INTERFERON ALFA-2B
     Indication: BRAIN NEOPLASM MALIGNANT
  4. CIMETIDINE [Concomitant]
     Active Substance: CIMETIDINE
     Route: 048
  5. TEMOZOLOMIDE. [Concomitant]
     Active Substance: TEMOZOLOMIDE

REACTIONS (1)
  - Nausea [Unknown]
